FAERS Safety Report 21881408 (Version 2)
Quarter: 2023Q1

REPORT INFORMATION
  Report Type: Report from Study
  Country: US (occurrence: US)
  Receive Date: 20230119
  Receipt Date: 20230130
  Transmission Date: 20230417
  Serious: No
  Sender: FDA-Public Use
  Company Number: US-ABBVIE-4237925

PATIENT
  Age: 53 Year
  Sex: Male
  Weight: 99.79 kg

DRUGS (1)
  1. RINVOQ [Suspect]
     Active Substance: UPADACITINIB
     Indication: Psoriatic arthropathy
     Dosage: START DATE TEXT: TWO OR THREE MONTHS AGO
     Route: 048
     Dates: end: 20221209

REACTIONS (7)
  - Gastric ulcer [Unknown]
  - Diarrhoea [Not Recovered/Not Resolved]
  - Abdominal pain upper [Recovering/Resolving]
  - Constipation [Not Recovered/Not Resolved]
  - Food intolerance [Unknown]
  - Diabetes mellitus [Unknown]
  - Intentional product misuse [Unknown]

NARRATIVE: CASE EVENT DATE: 20221101
